FAERS Safety Report 14761502 (Version 1)
Quarter: 2018Q2

REPORT INFORMATION
  Report Type: Spontaneous
  Country: US (occurrence: US)
  Receive Date: 20180416
  Receipt Date: 20180416
  Transmission Date: 20180711
  Serious: No
  Sender: FDA-Public Use
  Company Number: US-BION-006108

PATIENT
  Age: 42 Year
  Sex: Female
  Weight: 58 kg

DRUGS (1)
  1. ALEVE [Suspect]
     Active Substance: NAPROXEN SODIUM
     Indication: ARTHRALGIA
     Dosage: 1 LIQUID GEL EVERY 12 HOURS, FOR 5 YEARS
     Route: 048

REACTIONS (5)
  - Incorrect drug administration duration [Not Recovered/Not Resolved]
  - Product quality issue [Unknown]
  - Product leakage [Unknown]
  - Dysgeusia [Unknown]
  - Poor quality drug administered [Not Recovered/Not Resolved]
